FAERS Safety Report 5545806-0 (Version None)
Quarter: 2007Q4

REPORT INFORMATION
  Report Type: 
  Country: None (occurrence: None)
  Receive Date: 20071211
  Receipt Date: 20070131
  Transmission Date: 20080405
  Serious: No
  Sender: FDA-Public Use
  Company Number: US-AMGEN-KDL209254

PATIENT
  Sex: Female

DRUGS (4)
  1. ENBREL [Suspect]
     Indication: RHEUMATOID ARTHRITIS
     Route: 058
     Dates: start: 20000301
  2. PLAQUENIL [Concomitant]
     Dates: start: 20020101
  3. SULFASALAZINE [Concomitant]
     Dates: start: 20020101
  4. ARAVA [Concomitant]
     Dates: start: 20020101

REACTIONS (3)
  - INJECTION SITE PAIN [None]
  - RHEUMATOID ARTHRITIS [None]
  - THERAPEUTIC RESPONSE DECREASED [None]
